FAERS Safety Report 5683547-X (Version None)
Quarter: 2008Q1

REPORT INFORMATION
  Report Type: 
  Country: None (occurrence: None)
  Receive Date: 20080326
  Receipt Date: 20080324
  Transmission Date: 20080703
  Serious: Yes (Death, Other)
  Sender: FDA-Public Use
  Company Number: 2007SP003941

PATIENT
  Age: 74 Year
  Sex: Female
  Weight: 43 kg

DRUGS (10)
  1. TEMODAL [Suspect]
     Indication: ANAPLASTIC ASTROCYTOMA
     Dosage: 75 MG/M2; QD; PO
     Route: 048
     Dates: start: 20070129, end: 20070209
  2. GLYCEOL [Concomitant]
  3. KYTRIL [Concomitant]
  4. ZONISAMIDE [Concomitant]
  5. FAMOTIDINE [Concomitant]
  6. PREDONINE [Concomitant]
  7. EFFORTIL [Concomitant]
  8. MEYLON [Concomitant]
  9. CATABON [Concomitant]
  10. NORADRENALIN /00127501/ [Concomitant]

REACTIONS (8)
  - BLOOD PRESSURE DECREASED [None]
  - BLOOD SODIUM INCREASED [None]
  - CARDIAC FAILURE ACUTE [None]
  - DYSPNOEA [None]
  - GENERAL PHYSICAL HEALTH DETERIORATION [None]
  - PLATELET COUNT DECREASED [None]
  - PROTEIN TOTAL DECREASED [None]
  - SHOCK [None]
